FAERS Safety Report 8581619-3 (Version None)
Quarter: 2012Q3

REPORT INFORMATION
  Report Type: 
  Country: None (occurrence: None)
  Receive Date: 20120801
  Receipt Date: 20120801
  Transmission Date: 20120928
  Serious: Yes (Life-Threatening, Hospitalization, Disabling)
  Sender: FDA-Public Use
  Company Number: None

PATIENT
  Age: 28 Year
  Sex: Female
  Weight: 47.6277 kg

DRUGS (1)
  1. BOTOX [Suspect]
     Dosage: 16 UNITS ONCE IM
     Route: 030
     Dates: start: 20120506, end: 20120506

REACTIONS (7)
  - DEAFNESS UNILATERAL [None]
  - TINNITUS [None]
  - EAR DISCOMFORT [None]
  - ANXIETY [None]
  - HEADACHE [None]
  - MIGRAINE [None]
  - COGNITIVE DISORDER [None]
